FAERS Safety Report 6840090-X (Version None)
Quarter: 2010Q2

REPORT INFORMATION
  Report Type: 
  Country: None (occurrence: None)
  Receive Date: 20100629
  Receipt Date: 20100309
  Transmission Date: 20101027
  Serious: No
  Sender: FDA-Public Use
  Company Number: US-WYE-H14001710

PATIENT
  Age: 65 Year
  Sex: Female
  Weight: 71.73 kg

DRUGS (5)
  1. PRISTIQ [Suspect]
     Indication: DEPRESSION
     Dosage: 50 MG 1X PER 1 DAY, ORAL
     Route: 048
     Dates: start: 20080101, end: 20100201
  2. SYNTHROID [Concomitant]
  3. ZOCOR [Concomitant]
  4. FOLIC ACID [Concomitant]
  5. PREVACID [Concomitant]

REACTIONS (2)
  - DRUG WITHDRAWAL SYNDROME [None]
  - VERTIGO [None]
